FAERS Safety Report 8622591-7 (Version None)
Quarter: 2012Q3

REPORT INFORMATION
  Report Type: 
  Country: None (occurrence: None)
  Receive Date: 20120827
  Receipt Date: 20120817
  Transmission Date: 20120928
  Serious: Yes (Other)
  Sender: FDA-Public Use
  Company Number: JP-009507513-1208JPN008167

PATIENT

DRUGS (18)
  1. NORVASC [Concomitant]
     Dosage: 10 MG, UNK
     Route: 048
  2. RINDERON V [Concomitant]
     Dosage: UNK
     Route: 061
     Dates: start: 20120703
  3. PEG-INTRON [Suspect]
     Indication: HEPATITIS C
     Dosage: 1.5 MICROGRAM PER KILOGRAM, UNK
     Route: 058
  4. ALLOPURINOL [Concomitant]
     Dosage: 100 MG, QD
     Route: 048
     Dates: end: 20120521
  5. HIRUDOID [Concomitant]
     Dosage: UNK
     Route: 051
     Dates: start: 20120619
  6. XYZAL [Concomitant]
     Dosage: 5 MG, QD
     Route: 048
     Dates: start: 20120615
  7. ALLOPURINOL [Concomitant]
     Dosage: 100 UNK, UNK
     Route: 048
     Dates: start: 20120619
  8. PREDNISOLONE [Concomitant]
     Indication: PROPHYLAXIS
     Dosage: 20 MG, QD
     Route: 048
     Dates: start: 20120703, end: 20120705
  9. REBETOL [Suspect]
     Dosage: 800 MG, UNK
     Route: 048
     Dates: start: 20120508, end: 20120514
  10. REBETOL [Suspect]
     Dosage: 400 MG, UNK
     Route: 048
     Dates: start: 20120515
  11. REBETOL [Suspect]
     Indication: HEPATITIS C
     Dosage: 1000 MG, UNK
     Route: 048
     Dates: start: 20120424, end: 20120507
  12. TELAVIC [Suspect]
     Dosage: 1500 MG, QD
     Route: 048
     Dates: start: 20120703, end: 20120705
  13. RABEPRAZOLE SODIUM [Concomitant]
     Dosage: 10 MG, QD
     Route: 048
     Dates: start: 20120612, end: 20120630
  14. RABEPRAZOLE SODIUM [Concomitant]
     Dosage: 10 MG, UNK
     Route: 048
     Dates: start: 20120706, end: 20120718
  15. [COMPOSITION UNSPECIFIED] [Concomitant]
     Dosage: 6 DF, UNK
     Route: 051
     Dates: start: 20120710
  16. TELAVIC [Suspect]
     Indication: HEPATITIS C
     Dosage: 2250 MG, UNK
     Route: 048
     Dates: start: 20120424, end: 20120611
  17. CLOBETASOL PROPIONATE [Concomitant]
     Dosage: UNK
     Route: 061
     Dates: start: 20120612
  18. SITAGLIPTIN PHOSPHATE [Concomitant]
     Dosage: 50 MG, QD
     Route: 048
     Dates: start: 20120703, end: 20120709

REACTIONS (1)
  - GENERALISED ERYTHEMA [None]
